FAERS Safety Report 17338516 (Version 3)
Quarter: 2020Q1

REPORT INFORMATION
  Report Type: Report from Study
  Country: US (occurrence: US)
  Receive Date: 20200129
  Receipt Date: 20200310
  Transmission Date: 20200409
  Serious: Yes (Other)
  Sender: FDA-Public Use
  Company Number: NVSC2020US018769

PATIENT
  Age: 31 Year
  Sex: Female

DRUGS (2)
  1. COSENTYX [Suspect]
     Active Substance: SECUKINUMAB
     Indication: PSORIATIC ARTHROPATHY
     Dosage: 300 MG, QW (BENEATH THE SKIN, USUALLY VIA INJECTION)
     Route: 058
     Dates: start: 20200115, end: 202002
  2. COSENTYX [Suspect]
     Active Substance: SECUKINUMAB
     Indication: PSORIASIS
     Dosage: 300 MG, QW (BENEATH THE SKIN, USUALLY VIA INJECTION)
     Route: 058
     Dates: start: 20200102

REACTIONS (13)
  - Back pain [Unknown]
  - Blood urine present [Unknown]
  - Lip exfoliation [Unknown]
  - Psoriatic arthropathy [Unknown]
  - Peripheral swelling [Unknown]
  - Myalgia [Unknown]
  - Chapped lips [Unknown]
  - Lip swelling [Unknown]
  - Dermatitis contact [Recovering/Resolving]
  - Hepatic infection [Unknown]
  - Urinary tract infection [Unknown]
  - Contusion [Unknown]
  - Kidney infection [Unknown]

NARRATIVE: CASE EVENT DATE: 20200122
